FAERS Safety Report 20077204 (Version 2)
Quarter: 2021Q4

REPORT INFORMATION
  Report Type: Spontaneous
  Country: US (occurrence: US)
  Receive Date: 20211116
  Receipt Date: 20211130
  Transmission Date: 20220303
  Serious: Yes (Life-Threatening, Hospitalization, Other)
  Sender: FDA-Public Use
  Company Number: US-ADIENNEP-2021AD000499

PATIENT
  Age: 6 Month
  Sex: Male

DRUGS (2)
  1. CARBOPLATIN [Suspect]
     Active Substance: CARBOPLATIN
     Indication: Atypical teratoid/rhabdoid tumour of CNS
     Dosage: UNK, CYCLIC
  2. THIOTEPA [Suspect]
     Active Substance: THIOTEPA
     Indication: Atypical teratoid/rhabdoid tumour of CNS
     Dosage: UNK

REACTIONS (5)
  - Pulmonary veno-occlusive disease [Unknown]
  - Pericardial effusion [Unknown]
  - Pulmonary arterial hypertension [Unknown]
  - Right ventricular dilatation [Unknown]
  - Off label use [Unknown]
